FAERS Safety Report 9617975 (Version 1)
Quarter: 2013Q4

REPORT INFORMATION
  Report Type: Spontaneous
  Country: IT (occurrence: IT)
  Receive Date: 20131011
  Receipt Date: 20131011
  Transmission Date: 20140711
  Serious: Yes (Hospitalization)
  Sender: FDA-Public Use
  Company Number: IT-WATSON-2013-18415

PATIENT
  Age: 3 Year
  Sex: Female

DRUGS (1)
  1. AMLODIPINE (UNKNOWN) [Suspect]
     Indication: ACCIDENTAL EXPOSURE TO PRODUCT BY CHILD
     Dosage: 10 MG, SINGLE
     Route: 048
     Dates: start: 20130723, end: 20130723

REACTIONS (2)
  - Vomiting [Recovered/Resolved]
  - Drug administration error [Recovered/Resolved]
